FAERS Safety Report 25594618 (Version 2)
Quarter: 2025Q3

REPORT INFORMATION
  Report Type: Report from Study
  Country: GB (occurrence: GB)
  Receive Date: 20250723
  Receipt Date: 20250909
  Transmission Date: 20251020
  Serious: Yes (Other)
  Sender: CELLTRION
  Company Number: GB-CELLTRION INC.-2025GB024065

PATIENT

DRUGS (3)
  1. ADALIMUMAB-AATY [Suspect]
     Active Substance: ADALIMUMAB-AATY
     Indication: Crohn^s disease
     Dosage: YUFLYMA 40MG FOR INJECTION PENS INJECT ONE 40MG PRE-FILLED PEN SUBCUTANEOUSLY ON WEEK 4 THEN EVERY T
     Route: 058
     Dates: start: 202506
  2. ADALIMUMAB-AATY [Suspect]
     Active Substance: ADALIMUMAB-AATY
     Route: 058
     Dates: start: 20250711
  3. ADALIMUMAB-AATY [Suspect]
     Active Substance: ADALIMUMAB-AATY
     Route: 058
     Dates: start: 202507

REACTIONS (4)
  - Pelvic pain [Not Recovered/Not Resolved]
  - Suprapubic pain [Not Recovered/Not Resolved]
  - Sciatica [Recovering/Resolving]
  - Urinary tract infection [Not Recovered/Not Resolved]

NARRATIVE: CASE EVENT DATE: 20250713
